FAERS Safety Report 4604084-7 (Version None)
Quarter: 2005Q1

REPORT INFORMATION
  Report Type: 
  Country: None (occurrence: None)
  Receive Date: 20050309
  Receipt Date: 20050309
  Transmission Date: 20050727
  Serious: Yes (Life-Threatening, Hospitalization)
  Sender: FDA-Public Use
  Company Number: None

PATIENT
  Sex: Male

DRUGS (1)
  1. AMIODARONE [Suspect]

REACTIONS (3)
  - CARDIAC ARREST [None]
  - IDIOSYNCRATIC DRUG REACTION [None]
  - TORSADE DE POINTES [None]
